FAERS Safety Report 18381681 (Version 2)
Quarter: 2020Q4

REPORT INFORMATION
  Report Type: Spontaneous
  Country: US (occurrence: US)
  Receive Date: 20201014
  Receipt Date: 20201203
  Transmission Date: 20210114
  Serious: No
  Sender: FDA-Public Use
  Company Number: US-GLAXOSMITHKLINE-US2020199095

PATIENT
  Sex: Male

DRUGS (1)
  1. FLOVENT DISKUS [Suspect]
     Active Substance: FLUTICASONE PROPIONATE
     Indication: MULTIPLE ALLERGIES
     Dosage: 1 PUFF(S), BID
     Route: 055
     Dates: start: 2019

REACTIONS (6)
  - Condition aggravated [Recovering/Resolving]
  - Wrong technique in device usage process [Unknown]
  - Pulmonary pain [Recovering/Resolving]
  - Product use in unapproved indication [Unknown]
  - Product complaint [Unknown]
  - Off label use [Unknown]
